FAERS Safety Report 24754558 (Version 2)
Quarter: 2024Q4

REPORT INFORMATION
  Report Type: Spontaneous
  Country: SE (occurrence: SE)
  Receive Date: 20241219
  Receipt Date: 20241227
  Transmission Date: 20250115
  Serious: Yes (Other)
  Sender: MYLAN
  Company Number: SE-ORIFARM-032422

PATIENT
  Age: 61 Year
  Sex: Male

DRUGS (3)
  1. SERTRALINE [Suspect]
     Active Substance: SERTRALINE HYDROCHLORIDE
     Indication: Depression
     Dosage: SERTRALINE TREATMENT BEFORE SYMPTOM ONSET FOR 0.5 YEARS
     Route: 065
  2. SERTRALINE [Suspect]
     Active Substance: SERTRALINE HYDROCHLORIDE
     Dosage: 200 MILLIGRAM, QD (200 MG X 1 (AT THE TIME OF BIOPSY))
     Route: 065
  3. SERTRALINE [Suspect]
     Active Substance: SERTRALINE HYDROCHLORIDE
     Dosage: 200 MILLIGRAM, BID
     Route: 065

REACTIONS (2)
  - Mitochondrial myopathy acquired [Unknown]
  - Muscular weakness [Unknown]
